FAERS Safety Report 24651129 (Version 2)
Quarter: 2025Q3

REPORT INFORMATION
  Report Type: Spontaneous
  Country: US (occurrence: US)
  Receive Date: 20241122
  Receipt Date: 20250809
  Transmission Date: 20251021
  Serious: Yes (Death, Other)
  Sender: ALEXION PHARMACEUTICALS
  Company Number: US-AstraZeneca-CH-00751238A

PATIENT

DRUGS (1)
  1. CRESTOR [Suspect]
     Active Substance: ROSUVASTATIN CALCIUM

REACTIONS (3)
  - Myalgia [Unknown]
  - Death [Fatal]
  - Exercise tolerance decreased [Unknown]
